FAERS Safety Report 8472734-3 (Version None)
Quarter: 2012Q2

REPORT INFORMATION
  Report Type: 
  Country: None (occurrence: None)
  Receive Date: 20120627
  Receipt Date: 20120613
  Transmission Date: 20120825
  Serious: Yes (Hospitalization, Other)
  Sender: FDA-Public Use
  Company Number: DE-FRI-1000036609

PATIENT
  Sex: Male

DRUGS (11)
  1. SEROQUEL XR [Interacting]
     Dosage: 50 MG
     Route: 048
     Dates: start: 20111114, end: 20111124
  2. MIRTAZAPINE [Interacting]
     Dosage: 15 MG
     Route: 048
     Dates: start: 20120131, end: 20120217
  3. IRBESARTAN [Concomitant]
     Dosage: 150 MG
     Route: 048
  4. DIPIPERON [Concomitant]
     Dosage: 40 MG
     Route: 048
     Dates: start: 20120102
  5. SEROQUEL XR [Interacting]
     Dosage: 200 MG
     Route: 048
     Dates: start: 20120102, end: 20120216
  6. CITALOPRAM HYDROBROMIDE [Suspect]
     Dosage: UP TO 20 MG
     Route: 048
     Dates: start: 20110801
  7. SEROQUEL XR [Interacting]
     Dosage: 150 MG
     Route: 048
     Dates: start: 20111219, end: 20120101
  8. IRBESARTAN AND HYDROCHLOROTHIAZIDE [Concomitant]
     Dosage: 300 MG IRBESARTAN / 12.5 MG HYDROCHLOROTHIAZIDE
     Route: 048
  9. NORVASC [Concomitant]
     Dosage: 5 MG
     Route: 048
     Dates: end: 20120217
  10. SEROQUEL XR [Interacting]
     Dosage: 100 MG
     Route: 048
     Dates: start: 20111125, end: 20111218
  11. HALCION [Concomitant]
     Dosage: 0.25 - 0.75 MG
     Route: 048

REACTIONS (4)
  - SLEEP DISORDER [None]
  - SOMNAMBULISM [None]
  - CONFUSIONAL STATE [None]
  - POTENTIATING DRUG INTERACTION [None]
